FAERS Safety Report 7156580-9 (Version None)
Quarter: 2010Q4

REPORT INFORMATION
  Report Type: 
  Country: None (occurrence: None)
  Receive Date: 20101214
  Receipt Date: 20091106
  Transmission Date: 20110411
  Serious: No
  Sender: FDA-Public Use
  Company Number: US-ASTRAZENECA-2009SE24950

PATIENT
  Age: 66 Year
  Sex: Female

DRUGS (3)
  1. CRESTOR [Suspect]
     Route: 048
     Dates: start: 20090820
  2. NAPROSYN [Interacting]
  3. PREVACID [Interacting]

REACTIONS (2)
  - DRUG INTERACTION [None]
  - MUSCULOSKELETAL DISCOMFORT [None]
